FAERS Safety Report 15362451 (Version 3)
Quarter: 2018Q4

REPORT INFORMATION
  Report Type: Report from Study
  Country: US (occurrence: US)
  Receive Date: 20180907
  Receipt Date: 20181010
  Transmission Date: 20190204
  Serious: Yes (Hospitalization, Other)
  Sender: FDA-Public Use
  Company Number: US-PFIZER INC-2018328062

PATIENT
  Age: 68 Year
  Sex: Female

DRUGS (1)
  1. IBRANCE [Suspect]
     Active Substance: PALBOCICLIB
     Indication: BREAST CANCER FEMALE
     Dosage: 125 MG, CYCLIC (DAILY- 21 ON 7 OFF)
     Route: 048
     Dates: start: 20180801, end: 20180821

REACTIONS (4)
  - Diarrhoea [Not Recovered/Not Resolved]
  - Renal impairment [Recovering/Resolving]
  - Nausea [Recovering/Resolving]
  - Drug hypersensitivity [Unknown]

NARRATIVE: CASE EVENT DATE: 201808
